FAERS Safety Report 7153417-9 (Version None)
Quarter: 2010Q4

REPORT INFORMATION
  Report Type: 
  Country: None (occurrence: None)
  Receive Date: 20101213
  Receipt Date: 20101202
  Transmission Date: 20110411
  Serious: Yes (Life-Threatening, Other)
  Sender: FDA-Public Use
  Company Number: A0895006A

PATIENT
  Sex: Male
  Weight: 118.6 kg

DRUGS (19)
  1. AVANDIA [Suspect]
     Indication: TYPE 2 DIABETES MELLITUS
     Dosage: 8MG PER DAY
     Route: 048
     Dates: start: 20051101, end: 20101110
  2. CIPRALEX [Concomitant]
     Dosage: 20MG PER DAY
     Route: 065
  3. SEROQUEL [Concomitant]
     Dosage: 30MG TWICE PER DAY
     Route: 065
  4. LORAZEPAM [Concomitant]
     Dosage: .5MG TWICE PER DAY
     Route: 065
     Dates: end: 20101115
  5. TRAZODONE [Concomitant]
     Dosage: 200MG TWICE PER DAY
     Route: 065
     Dates: end: 20101115
  6. METFORMIN [Concomitant]
     Dosage: 2000MG PER DAY
     Route: 065
  7. NOVO GLYBURIDE [Concomitant]
     Dosage: 20MG PER DAY
     Route: 065
  8. LIPITOR [Concomitant]
     Dosage: 20MG PER DAY
     Route: 065
  9. WARFARIN SODIUM [Concomitant]
     Route: 065
  10. ATACAND [Concomitant]
     Dosage: 8MG UNKNOWN
     Route: 065
  11. BISOPROLOL [Concomitant]
     Dosage: 2.5MG PER DAY
     Route: 065
  12. ALFUZOSIN [Concomitant]
     Dosage: 10MG PER DAY
     Route: 065
  13. ASPIRIN [Concomitant]
     Dosage: 81MG PER DAY
     Route: 065
  14. VITAMIN B-12 [Concomitant]
     Dosage: 1200MG PER DAY
     Route: 065
  15. APO FUROSEMIDE [Concomitant]
     Dosage: 40MG PER DAY
     Route: 065
  16. VITAMIN D [Concomitant]
     Dosage: 1TAB PER DAY
     Route: 065
  17. OMEGA 3-6-9 [Concomitant]
     Dosage: 1CAP PER DAY
     Route: 065
  18. GOLD SPECTRUM [Concomitant]
     Dosage: 1TAB PER DAY
     Route: 065
  19. INDAPAMIDE [Concomitant]
     Dosage: .625MG PER DAY
     Route: 065

REACTIONS (13)
  - ABASIA [None]
  - ABDOMINAL DISTENSION [None]
  - ANAEMIA [None]
  - CARDIAC FAILURE CONGESTIVE [None]
  - DYSPNOEA EXERTIONAL [None]
  - INCREASED APPETITE [None]
  - INDURATION [None]
  - INTERNATIONAL NORMALISED RATIO INCREASED [None]
  - LIVER FUNCTION TEST ABNORMAL [None]
  - OEDEMA PERIPHERAL [None]
  - PLATELET COUNT DECREASED [None]
  - WEIGHT INCREASED [None]
  - WHEEZING [None]
